FAERS Safety Report 9747666 (Version 1)
Quarter: 2013Q4

REPORT INFORMATION
  Report Type: Spontaneous
  Country: US (occurrence: None)
  Receive Date: 20131211
  Receipt Date: 20131211
  Transmission Date: 20140711
  Serious: Yes (Other)
  Sender: FDA-Public Use
  Company Number: None

PATIENT
  Sex: Male
  Weight: 160 kg

DRUGS (1)
  1. MARIJUANA [Suspect]

REACTIONS (2)
  - Disturbance in attention [None]
  - Mood altered [None]
